FAERS Safety Report 18150241 (Version 2)
Quarter: 2020Q4

REPORT INFORMATION
  Report Type: Spontaneous
  Country: DE (occurrence: DE)
  Receive Date: 20200814
  Receipt Date: 20201006
  Transmission Date: 20210113
  Serious: No
  Sender: FDA-Public Use
  Company Number: DE-ALLERGAN-2029777US

PATIENT
  Age: 60 Year
  Sex: Male

DRUGS (3)
  1. CARIPRAZINE HCL - BP [Suspect]
     Active Substance: CARIPRAZINE HYDROCHLORIDE
     Indication: SCHIZOPHRENIA
     Dosage: 1.5 MG
     Route: 048
     Dates: start: 20180915, end: 20181008
  2. BIPERIDEN HYDROCHLORIDE [Concomitant]
     Active Substance: BIPERIDEN HYDROCHLORIDE
     Indication: PRODUCT USED FOR UNKNOWN INDICATION
     Dosage: UNK, BID
  3. PIMOZIDE. [Concomitant]
     Active Substance: PIMOZIDE
     Indication: SCHIZOPHRENIA
     Route: 065

REACTIONS (5)
  - Chromaturia [Recovered/Resolved]
  - Eye pain [Unknown]
  - Renal pain [Recovered/Resolved]
  - Eye irritation [Recovered/Resolved]
  - Visual impairment [Recovered/Resolved]

NARRATIVE: CASE EVENT DATE: 20180915
